FAERS Safety Report 22963630 (Version 3)
Quarter: 2023Q4

REPORT INFORMATION
  Report Type: Report from Study
  Country: CA (occurrence: CA)
  Receive Date: 20230921
  Receipt Date: 20231031
  Transmission Date: 20240109
  Serious: Yes (Hospitalization, Other)
  Sender: FDA-Public Use
  Company Number: CA-ABBVIE-5413459

PATIENT
  Sex: Male

DRUGS (4)
  1. SKYRIZI [Suspect]
     Active Substance: RISANKIZUMAB-RZAA
     Indication: Crohn^s disease
     Dosage: WEEK ZERO
     Route: 042
     Dates: start: 20230818, end: 20230818
  2. SKYRIZI [Suspect]
     Active Substance: RISANKIZUMAB-RZAA
     Indication: Crohn^s disease
     Route: 042
  3. PREDNISONE [Suspect]
     Active Substance: PREDNISONE
     Indication: Product used for unknown indication
     Route: 065
  4. URSODIOL [Concomitant]
     Active Substance: URSODIOL
     Indication: Product used for unknown indication

REACTIONS (6)
  - Rectal abscess [Recovering/Resolving]
  - Cholangitis sclerosing [Unknown]
  - Perirectal abscess [Unknown]
  - Crohn^s disease [Unknown]
  - Proctalgia [Unknown]
  - Erythema [Unknown]

NARRATIVE: CASE EVENT DATE: 20230101
